FAERS Safety Report 4352483-3 (Version None)
Quarter: 2004Q2

REPORT INFORMATION
  Report Type: 
  Country: None (occurrence: None)
  Receive Date: 20040503
  Receipt Date: 20040503
  Transmission Date: 20050107
  Serious: Yes (Death)
  Sender: FDA-Public Use
  Company Number: None

PATIENT
  Age: 59 Year
  Sex: Female
  Weight: 47.6277 kg

DRUGS (4)
  1. REMERON [Suspect]
     Indication: DEPRESSION
     Dosage: 30 MG (1 TABLET/DAY)
     Dates: start: 20031210
  2. EFFEXOR [Suspect]
     Indication: DEPRESSION
     Dosage: 37.5 MG (1 CAPSUL/DAY)
     Dates: start: 20040102
  3. CLONAZEPAM (KLONOPINE) [Concomitant]
  4. SEROQUEL [Concomitant]

REACTIONS (13)
  - AGITATION [None]
  - ANXIETY [None]
  - CACHEXIA [None]
  - COMPLETED SUICIDE [None]
  - CONDITION AGGRAVATED [None]
  - DECREASED APPETITE [None]
  - DEPRESSION [None]
  - FATIGUE [None]
  - FEELING ABNORMAL [None]
  - INJURY ASPHYXIATION [None]
  - INSOMNIA [None]
  - SOCIAL AVOIDANT BEHAVIOUR [None]
  - WEIGHT DECREASED [None]
